FAERS Safety Report 21944293 (Version 2)
Quarter: 2024Q3

REPORT INFORMATION
  Report Type: Spontaneous
  Country: PL (occurrence: PL)
  Receive Date: 20230202
  Receipt Date: 20240902
  Transmission Date: 20241017
  Serious: Yes (Other)
  Sender: ACCORD
  Company Number: PL-Accord-298440

PATIENT
  Age: 7 Year
  Sex: Female

DRUGS (36)
  1. METHOTREXATE [Suspect]
     Active Substance: METHOTREXATE
     Indication: B-cell lymphoma stage III
     Dosage: 15 MG ON DAY 1
     Route: 037
  2. CYTARABINE [Suspect]
     Active Substance: CYTARABINE
     Indication: B-cell lymphoma stage III
     Dosage: ON DAY 7
     Route: 037
  3. DOXORUBICIN [Suspect]
     Active Substance: DOXORUBICIN
     Indication: B-cell lymphoma stage III
     Dosage: ON DAY 2, 60 MG/M2/DAY IN 1HR
  4. VINCRISTINE [Suspect]
     Active Substance: VINCRISTINE
     Indication: B-cell lymphoma stage III
     Dosage: ON DAY 1
     Route: 042
  5. PREDNISONE [Suspect]
     Active Substance: PREDNISONE
     Indication: B-cell lymphoma stage III
     Dosage: OVER 15 MIN, FROM DAY 1-7, 60 MG/M2/DAY (DIVIDED INTO BID DOSES)
     Route: 048
  6. CYCLOPHOSPHAMIDE [Suspect]
     Active Substance: CYCLOPHOSPHAMIDE
     Indication: B-cell lymphoma stage III
     Dosage: ON DAY 1, OVER 15 MIN
  7. HYDROCORTISONE [Suspect]
     Active Substance: HYDROCORTISONE\HYDROCORTISONE ACETATE
     Indication: B-cell lymphoma stage III
     Dosage: DAY 1 (PRE-PHASE COP)
  8. RITUXIMAB [Suspect]
     Active Substance: RITUXIMAB
     Indication: B-cell lymphoma stage III
     Dosage: ON DAY 1
  9. LEUCOVORIN [Suspect]
     Active Substance: LEUCOVORIN\LEUCOVORIN CALCIUM
     Indication: B-cell lymphoma stage III
     Dosage: ON DAY 2, 3 AND 4
     Route: 048
  10. OXYGEN [Concomitant]
     Active Substance: OXYGEN
     Indication: Bacterial infection
  11. AZITHROMYCIN [Concomitant]
     Active Substance: AZITHROMYCIN
     Indication: Antibiotic prophylaxis
  12. DEXTROSE [Suspect]
     Active Substance: DEXTROSE\DEXTROSE MONOHYDRATE
     Indication: Medication dilution
     Dosage: 500 ML/M2 INFUSIONS ON DAY 1 OF R-COPADM, TWO CYCLES
  13. VINCRISTINE [Suspect]
     Active Substance: VINCRISTINE
     Indication: B-cell lymphoma stage III
     Dosage: ON DAY 1
     Route: 042
  14. METHOTREXATE [Suspect]
     Active Substance: METHOTREXATE
     Indication: B-cell lymphoma stage III
     Dosage: 15 MG ON DAY 6
     Route: 037
  15. RITUXIMAB [Suspect]
     Active Substance: RITUXIMAB
     Indication: B-cell lymphoma stage III
     Dosage: ON DAY 1
  16. METHOTREXATE [Suspect]
     Active Substance: METHOTREXATE
     Indication: B-cell lymphoma stage III
     Dosage: ON DAY 1, 1.0 G/M2 IN 500 ML/M2 DEXTROSE 5%
     Route: 037
  17. LEUCOVORIN [Suspect]
     Active Substance: LEUCOVORIN\LEUCOVORIN CALCIUM
     Indication: B-cell lymphoma stage III
     Dosage: ON DAY 2, 3 AND 4
     Route: 048
  18. METHOTREXATE [Suspect]
     Active Substance: METHOTREXATE
     Indication: B-cell lymphoma stage III
     Dosage: 15 MG ON DAY 2
     Route: 037
  19. CYTARABINE [Suspect]
     Active Substance: CYTARABINE
     Indication: B-cell lymphoma stage III
     Dosage: ON DAY 4, 100 MG/M2 IN 1000 ML/M2 DEXTROSE SALINE OVER 24 H
  20. PREDNISONE [Suspect]
     Active Substance: PREDNISONE
     Indication: B-cell lymphoma stage III
     Dosage: 60 MG/M2/DAY (DIVIDED INTO BID DOSES) ORALLY; DAY 6 (R-COPADM)TRAIL TO?ZERO OVER 3 DAYS
     Route: 048
  21. METHOTREXATE [Suspect]
     Active Substance: METHOTREXATE
     Indication: B-cell lymphoma stage III
     Dosage: 1.0 G/M2 IN 500 ML/M2 DEXTROSE 5% AS INTRAVENOUS INFUSION ON DAY 1
  22. CYCLOPHOSPHAMIDE [Suspect]
     Active Substance: CYCLOPHOSPHAMIDE
     Indication: B-cell lymphoma stage III
     Dosage: ON DAY 2, 3 AND 4, 200 (1ST CYCLE) AND 250 MG/M2 (2NDCYCLE) OVER 15 MIN
  23. HYDROCORTISONE [Suspect]
     Active Substance: HYDROCORTISONE\HYDROCORTISONE ACETATE
     Indication: B-cell lymphoma stage III
     Dosage: ON DAY 2 AND DAY 7
     Route: 037
  24. PREDNISONE [Suspect]
     Active Substance: PREDNISONE
     Indication: Primary mediastinal large B-cell lymphoma stage III
     Dosage: OVER 15 MIN, FROM DAY 1-7, 60 MG/M2/DAY (DIVIDED INTO BID DOSES)
     Route: 048
  25. PREDNISONE [Suspect]
     Active Substance: PREDNISONE
     Indication: B-cell lymphoma stage III
     Dosage: 60 MG/M2/DAY (DIVIDED INTO BID DOSES) ORALLY DAY 4 (R-COPADM)
     Route: 048
  26. PREDNISONE [Suspect]
     Active Substance: PREDNISONE
     Indication: B-cell lymphoma stage III
     Dosage: 60 MG/M2/DAY (DIVIDED INTO BID DOSES) ORALLYDAY 2 (R-COPADM)
     Route: 048
  27. PREDNISONE [Suspect]
     Active Substance: PREDNISONE
     Indication: B-cell lymphoma stage III
     Dosage: 60 MG/M2/DAY (DIVIDED INTO BID DOSES) ORALLY DAY 3 (PRE-PHASE COP)
     Route: 048
  28. PREDNISONE [Suspect]
     Active Substance: PREDNISONE
     Indication: B-cell lymphoma stage III
     Dosage: 0 MG/M2/DAY (DIVIDED INTO BID DOSES) ORALLY DAY 6 (PRE-PHASE COP)
     Route: 048
  29. PREDNISONE [Suspect]
     Active Substance: PREDNISONE
     Indication: B-cell lymphoma stage III
     Dosage: 60 MG/M2/DAY (DIVIDED INTO BID DOSES) ORALLY DAY 5 (R-COPADM)
     Route: 048
  30. PREDNISONE [Suspect]
     Active Substance: PREDNISONE
     Indication: B-cell lymphoma stage III
     Dosage: 60 MG/M2/DAY (DIVIDED INTO BID DOSES) ORALLY DAY 1 (PRE-PHASE COP)
     Route: 048
  31. PREDNISONE [Suspect]
     Active Substance: PREDNISONE
     Indication: B-cell lymphoma stage III
     Dosage: 60 MG/M2/DAY (DIVIDED INTO BID DOSES) ORALLY DAY 7 (PRE-PHASE COP)
     Route: 048
  32. PREDNISONE [Suspect]
     Active Substance: PREDNISONE
     Indication: B-cell lymphoma stage III
     Dosage: 60 MG/M2/DAY (DIVIDED INTO BID DOSES) ORALLY DAY 3 (R-COPADM)
     Route: 048
  33. PREDNISONE [Suspect]
     Active Substance: PREDNISONE
     Indication: B-cell lymphoma stage III
     Dosage: 60 MG/M2/DAY (DIVIDED INTO BID DOSES) ORALLY DAY 5 (PRE-PHASE COP)
     Route: 048
  34. PREDNISONE [Suspect]
     Active Substance: PREDNISONE
     Indication: B-cell lymphoma stage III
     Dosage: 60 MG/M2/DAY (DIVIDED INTO BID DOSES) ORALLY DAY 1 (R-COPADM)
     Route: 048
  35. PREDNISONE [Suspect]
     Active Substance: PREDNISONE
     Indication: B-cell lymphoma stage III
     Dosage: 60 MG/M2/DAY (DIVIDED INTO BID DOSES) ORALLY DAY 2 (PRE-PHASE COP)
     Route: 048
  36. CYCLOPHOSPHAMIDE [Suspect]
     Active Substance: CYCLOPHOSPHAMIDE
     Indication: B-cell lymphoma stage III
     Dosage: 250 (2ND R-COPADM) MG/M2/DOSE EVERY 12 HR AS AN INFUSION OVER 15 MINS

REACTIONS (9)
  - Leukopenia [Unknown]
  - Febrile neutropenia [Unknown]
  - Urinary tract infection [Unknown]
  - Oral disorder [Unknown]
  - Thrombocytopenia [Unknown]
  - Anaemia [Unknown]
  - Hypertension [Unknown]
  - Off label use [Unknown]
  - Therapy non-responder [Unknown]
